FAERS Safety Report 23314418 (Version 2)
Quarter: 2023Q4

REPORT INFORMATION
  Report Type: Spontaneous
  Country: US (occurrence: US)
  Receive Date: 20231219
  Receipt Date: 20231222
  Transmission Date: 20240110
  Serious: Yes (Death, Other)
  Sender: FDA-Public Use
  Company Number: US-009507513-2312USA004909

PATIENT
  Sex: Female

DRUGS (1)
  1. KEYTRUDA [Suspect]
     Active Substance: PEMBROLIZUMAB
     Dosage: UNK UNK, EVERY 6 WEEKS
     Dates: end: 202308

REACTIONS (5)
  - Malignant neoplasm progression [Fatal]
  - Hypothalamo-pituitary disorder [Unknown]
  - Memory impairment [Unknown]
  - Balance disorder [Unknown]
  - Hospice care [Unknown]

NARRATIVE: CASE EVENT DATE: 20230101
